FAERS Safety Report 8721885 (Version 2)
Quarter: 2012Q4

REPORT INFORMATION
  Report Type: 
  Country: CA (occurrence: CA)
  Receive Date: 20120814
  Receipt Date: 20121015
  Transmission Date: 20130627
  Serious: Yes (Other)
  Sender: FDA-Public Use
  Company Number: PHHY2012CA027438

PATIENT
  Sex: Female

DRUGS (1)
  1. SANDOSTATIN LAR [Suspect]
     Indication: NEUROENDOCRINE TUMOUR
     Dosage: 30 mg, QMO
     Route: 030
     Dates: start: 20110907

REACTIONS (5)
  - Partial seizures [Recovered/Resolved]
  - Dyskinesia [Unknown]
  - Radiation necrosis [Unknown]
  - Hypoaesthesia [Unknown]
  - Muscular weakness [Unknown]
